FAERS Safety Report 17315861 (Version 2)
Quarter: 2020Q1

REPORT INFORMATION
  Report Type: Spontaneous
  Country: US (occurrence: US)
  Receive Date: 20200124
  Receipt Date: 20200212
  Transmission Date: 20200409
  Serious: No
  Sender: FDA-Public Use
  Company Number: US-PFIZER INC-2020033266

PATIENT
  Age: 72 Year
  Sex: Female

DRUGS (2)
  1. IBRANCE [Suspect]
     Active Substance: PALBOCICLIB
     Indication: BREAST CANCER METASTATIC
     Dosage: UNK
     Dates: start: 2017
  2. FULVESTRANT. [Concomitant]
     Active Substance: FULVESTRANT

REACTIONS (2)
  - Vulvovaginal dryness [Not Recovered/Not Resolved]
  - Alopecia [Unknown]
